FAERS Safety Report 4516819-2 (Version None)
Quarter: 2004Q4

REPORT INFORMATION
  Report Type: 
  Country: None (occurrence: None)
  Receive Date: 20041202
  Receipt Date: 20041119
  Transmission Date: 20050328
  Serious: Yes (Other)
  Sender: FDA-Public Use
  Company Number: US-GLAXOSMITHKLINE-A0534646A

PATIENT
  Age: 71 Year
  Sex: Female

DRUGS (9)
  1. SEREVENT [Suspect]
     Indication: EMPHYSEMA
     Dosage: 1PUFF TWICE PER DAY
     Route: 055
     Dates: start: 20030401, end: 20041118
  2. SEREVENT [Suspect]
     Route: 055
  3. UNIPHYL [Concomitant]
  4. SPIRIVA [Concomitant]
  5. TYLENOL (CAPLET) [Concomitant]
  6. XALATAN [Concomitant]
  7. TRUSOPT [Concomitant]
  8. CRESTOR [Concomitant]
  9. ALBUTEROL [Concomitant]

REACTIONS (12)
  - ARRHYTHMIA [None]
  - ATRIAL FIBRILLATION [None]
  - CATARACT [None]
  - CONJUNCTIVITIS [None]
  - DYSPNOEA [None]
  - GLAUCOMA [None]
  - HEADACHE [None]
  - HEART RATE INCREASED [None]
  - OSTEOPOROSIS [None]
  - PHARMACEUTICAL PRODUCT COMPLAINT [None]
  - VISUAL ACUITY REDUCED [None]
  - WEIGHT DECREASED [None]
